FAERS Safety Report 6137886-9 (Version None)
Quarter: 2009Q1

REPORT INFORMATION
  Report Type: 
  Country: None (occurrence: None)
  Receive Date: 20090327
  Receipt Date: 20090316
  Transmission Date: 20090719
  Serious: Yes (Hospitalization)
  Sender: FDA-Public Use
  Company Number: 237477K06USA

PATIENT
  Age: 43 Year
  Sex: Female
  Weight: 53 kg

DRUGS (4)
  1. REBIF [Suspect]
     Indication: MULTIPLE SCLEROSIS
     Dosage: 44 MCG, 3 IN 1 WEEKS, SUBCUTANEOUS
     Route: 058
     Dates: start: 20060912
  2. AMBIEN [Concomitant]
  3. BACLOFEN [Concomitant]
  4. PAXIL [Concomitant]

REACTIONS (4)
  - BLADDER DISORDER [None]
  - ENDOMETRIOSIS [None]
  - GAIT DISTURBANCE [None]
  - GASTROINTESTINAL DISORDER [None]
